FAERS Safety Report 25245477 (Version 7)
Quarter: 2025Q4

REPORT INFORMATION
  Report Type: Report from Study
  Country: US (occurrence: US)
  Receive Date: 20250428
  Receipt Date: 20251106
  Transmission Date: 20260118
  Serious: Yes (Other)
  Sender: SANOFI AVENTIS
  Company Number: US-SA-2025SA122068

PATIENT
  Age: 50 Year
  Sex: Female
  Weight: 63.5 kg

DRUGS (2)
  1. ALEMTUZUMAB [Suspect]
     Active Substance: ALEMTUZUMAB
     Indication: Relapsing multiple sclerosis
     Dosage: 12 MG, QD
     Route: 041
     Dates: start: 20190610, end: 20190614
  2. ALEMTUZUMAB [Suspect]
     Active Substance: ALEMTUZUMAB
     Dosage: 12 MG, QD
     Route: 041
     Dates: start: 20200615, end: 20200617

REACTIONS (2)
  - Hyperparathyroidism [Not Recovered/Not Resolved]
  - Tooth fracture [Recovered/Resolved]

NARRATIVE: CASE EVENT DATE: 20241111
